FAERS Safety Report 8015407-3 (Version None)
Quarter: 2011Q4

REPORT INFORMATION
  Report Type: 
  Country: None (occurrence: None)
  Receive Date: 20111223
  Receipt Date: 20111215
  Transmission Date: 20120403
  Serious: Yes (Hospitalization)
  Sender: FDA-Public Use
  Company Number: TCI2011A06639

PATIENT
  Age: 63 Year
  Sex: Male

DRUGS (4)
  1. LANTUS [Concomitant]
  2. NOVORAPID FLEXPEN (INSULIN ASPART) [Concomitant]
  3. DIAZEPAM [Concomitant]
  4. ACTOS [Suspect]
     Indication: DIABETES MELLITUS
     Dosage: 15 MG (15 MG, 1 IN 1 D), PER ORAL
     Route: 048
     Dates: start: 20100401

REACTIONS (1)
  - BLADDER CANCER [None]
